FAERS Safety Report 11309972 (Version 2)
Quarter: 2015Q3

REPORT INFORMATION
  Report Type: Spontaneous
  Country: ZA (occurrence: ZA)
  Receive Date: 20150724
  Receipt Date: 20150810
  Transmission Date: 20151125
  Serious: Yes (Death, Hospitalization, Other)
  Sender: FDA-Public Use
  Company Number: ZA-BAYER-2015-383980

PATIENT
  Age: 45 Year
  Sex: Female

DRUGS (3)
  1. STIVARGA [Suspect]
     Active Substance: REGORAFENIB
     Indication: COLORECTAL CANCER
     Dosage: 160 MG
     Route: 048
     Dates: start: 20150416
  2. STIVARGA [Suspect]
     Active Substance: REGORAFENIB
     Indication: COLORECTAL CANCER
     Dosage: 80MG DAILY
     Route: 048
  3. STIVARGA [Suspect]
     Active Substance: REGORAFENIB
     Indication: COLORECTAL CANCER
     Dosage: 160 MG
     Route: 048
     Dates: start: 20150522

REACTIONS (5)
  - Pain [None]
  - Rectal haemorrhage [None]
  - Hydronephrosis [None]
  - Colorectal cancer metastatic [Fatal]
  - Anaemia [None]

NARRATIVE: CASE EVENT DATE: 201506
